FAERS Safety Report 9276687 (Version 2)
Quarter: 2013Q2

REPORT INFORMATION
  Report Type: Report from Study
  Country: DE (occurrence: DE)
  Receive Date: 20130507
  Receipt Date: 20130510
  Transmission Date: 20140414
  Serious: Yes (Hospitalization)
  Sender: FDA-Public Use
  Company Number: PHHO2013DE005876

PATIENT
  Age: 36 Year
  Sex: Female
  Weight: 41.7 kg

DRUGS (9)
  1. ACZ885 [Suspect]
     Indication: STILL^S DISEASE ADULT ONSET
     Dosage: UNK
     Route: 058
     Dates: start: 20130314, end: 20130410
  2. ZOLPIDEM [Concomitant]
     Indication: SLEEP DISORDER
     Dosage: 10 MG, QD
     Route: 048
     Dates: start: 20130131, end: 20130425
  3. PREDNISOLONE [Concomitant]
     Indication: JUVENILE IDIOPATHIC ARTHRITIS
     Dosage: 8 MG, QD
     Route: 048
     Dates: start: 20130206, end: 20130422
  4. PREDNISOLONE [Concomitant]
     Dosage: 20 MG, QD
     Route: 048
     Dates: start: 20130423, end: 20130427
  5. PREDNISOLONE [Concomitant]
     Dosage: 10 MG, QD
     Route: 048
     Dates: start: 20130428
  6. CALCIUM PLUS VITAMIN D [Concomitant]
     Indication: OSTEOPOROSIS PROPHYLAXIS
     Dosage: 1000MG/DAY+1000IU/DAY
     Route: 048
     Dates: start: 20130126
  7. METAMIZOLE [Concomitant]
     Indication: JUVENILE IDIOPATHIC ARTHRITIS
     Dosage: 1000 MG, QD
     Route: 048
     Dates: start: 20130126
  8. PANTOZOL [Concomitant]
     Indication: PROPHYLAXIS AGAINST GASTROINTESTINAL ULCER
     Dosage: 40 MG, QD
     Route: 048
     Dates: start: 20130122
  9. LORATADIN [Concomitant]
     Indication: PRURITUS
     Dosage: 10 MG, QD
     Route: 048
     Dates: start: 20130410

REACTIONS (1)
  - Liver function test abnormal [Recovering/Resolving]
